FAERS Safety Report 16342132 (Version 2)
Quarter: 2019Q4

REPORT INFORMATION
  Report Type: Report from Study
  Country: AR (occurrence: AR)
  Receive Date: 20190522
  Receipt Date: 20191014
  Transmission Date: 20200122
  Serious: Yes (Death, Hospitalization, Other)
  Sender: FDA-Public Use
  Company Number: AR-ACTELION-A-CH2018-180268

PATIENT
  Age: 67 Year
  Sex: Female
  Weight: 49 kg

DRUGS (2)
  1. OPSUMIT [Suspect]
     Active Substance: MACITENTAN
     Indication: PULMONARY ARTERIAL HYPERTENSION
     Dosage: 10 MG, QD
     Route: 048
     Dates: start: 20160101
  2. TADALAFIL. [Concomitant]
     Active Substance: TADALAFIL

REACTIONS (11)
  - General physical health deterioration [Recovering/Resolving]
  - Dizziness [Unknown]
  - Headache [Unknown]
  - Discomfort [Unknown]
  - Rectal prolapse [Recovering/Resolving]
  - Pain [Unknown]
  - Hypokinesia [Unknown]
  - Influenza [Recovering/Resolving]
  - Death [Fatal]
  - Haemorrhoids [Unknown]
  - Lower respiratory tract infection viral [Recovering/Resolving]

NARRATIVE: CASE EVENT DATE: 20181010
